FAERS Safety Report 4336691-3 (Version None)
Quarter: 2004Q2

REPORT INFORMATION
  Report Type: 
  Country: None (occurrence: None)
  Receive Date: 20040408
  Receipt Date: 20040325
  Transmission Date: 20050107
  Serious: Yes (Other)
  Sender: FDA-Public Use
  Company Number: S04-USA-01830-01

PATIENT

DRUGS (2)
  1. NAMENDA [Suspect]
  2. ARICEPT [Suspect]

REACTIONS (2)
  - ELECTROCARDIOGRAM ABNORMAL [None]
  - LOSS OF CONSCIOUSNESS [None]
